FAERS Safety Report 6402681-X (Version None)
Quarter: 2009Q4

REPORT INFORMATION
  Report Type: 
  Country: None (occurrence: None)
  Receive Date: 20091015
  Receipt Date: 20091009
  Transmission Date: 20100525
  Serious: Yes (Other)
  Sender: FDA-Public Use
  Company Number: DE-AMGEN-UK356057

PATIENT
  Sex: Female
  Weight: 70 kg

DRUGS (1)
  1. NPLATE [Suspect]
     Indication: IDIOPATHIC THROMBOCYTOPENIC PURPURA
     Route: 058
     Dates: start: 20090610, end: 20090715

REACTIONS (3)
  - HEADACHE [None]
  - SUDDEN HEARING LOSS [None]
  - TINNITUS [None]
